FAERS Safety Report 5623262-1 (Version None)
Quarter: 2008Q1

REPORT INFORMATION
  Report Type: 
  Country: None (occurrence: None)
  Receive Date: 20080115
  Receipt Date: 20070108
  Transmission Date: 20080703
  Serious: Yes (Other)
  Sender: FDA-Public Use
  Company Number: 2007002781

PATIENT
  Age: 75 Year
  Sex: Female
  Weight: 43.5 kg

DRUGS (3)
  1. AROMASIN [Suspect]
     Indication: BREAST CANCER
     Dosage: 25 MG (25 MG,DAILY),ORAL ; 25 MG (25 MG,DAILY),ORAL
     Route: 048
     Dates: start: 20041202, end: 20050305
  2. AROMASIN [Suspect]
     Indication: BREAST CANCER
     Dosage: 25 MG (25 MG,DAILY),ORAL ; 25 MG (25 MG,DAILY),ORAL
     Route: 048
     Dates: start: 20061201
  3. ACTONEL [Concomitant]

REACTIONS (3)
  - ARTHRALGIA [None]
  - FATIGUE [None]
  - PAIN [None]
